FAERS Safety Report 15081868 (Version 1)
Quarter: 2018Q2

REPORT INFORMATION
  Report Type: Spontaneous
  Country: FR (occurrence: FR)
  Receive Date: 20180628
  Receipt Date: 20180628
  Transmission Date: 20180711
  Serious: Yes (Other)
  Sender: FDA-Public Use
  Company Number: FR-CONCORDIA PHARMACEUTICALS INC.-GSH201806-002177

PATIENT
  Age: 77 Year
  Sex: Male
  Weight: 78 kg

DRUGS (9)
  1. AVODART [Suspect]
     Active Substance: DUTASTERIDE
     Indication: BENIGN PROSTATIC HYPERPLASIA
     Route: 048
     Dates: start: 20180329, end: 20180405
  2. FUROSEMIDE. [Concomitant]
     Active Substance: FUROSEMIDE
  3. ALFUZOSIN [Suspect]
     Active Substance: ALFUZOSIN
     Indication: BENIGN PROSTATIC HYPERPLASIA
     Route: 048
     Dates: start: 20180329, end: 20180405
  4. CEFUROXIME. [Suspect]
     Active Substance: CEFUROXIME
     Indication: ANTIBIOTIC PROPHYLAXIS
     Dates: start: 20180329, end: 20180329
  5. PREVISCAN (FLUINDIONE) [Concomitant]
     Active Substance: FLUINDIONE
  6. ALDACTONE-A [Concomitant]
     Active Substance: SPIRONOLACTONE
  7. REPAGLINIDE. [Concomitant]
     Active Substance: REPAGLINIDE
  8. BISOPROLOL [Concomitant]
     Active Substance: BISOPROLOL
  9. LOVENOX [Concomitant]
     Active Substance: ENOXAPARIN SODIUM

REACTIONS (3)
  - Dermatitis exfoliative generalised [Recovered/Resolved]
  - Toxic skin eruption [Recovered/Resolved]
  - Pruritus [Recovered/Resolved]

NARRATIVE: CASE EVENT DATE: 20180402
